FAERS Safety Report 21972024 (Version 1)
Quarter: 2023Q1

REPORT INFORMATION
  Report Type: Spontaneous
  Country: CN (occurrence: CN)
  Receive Date: 20230209
  Receipt Date: 20230209
  Transmission Date: 20230418
  Serious: Yes (Hospitalization, Other)
  Sender: FDA-Public Use
  Company Number: CN-ASPEN-GLO2023CN000581

PATIENT

DRUGS (4)
  1. LEUKERAN [Suspect]
     Active Substance: CHLORAMBUCIL
     Indication: Chronic lymphocytic leukaemia
     Dosage: 30 MG, 1 DOSE 2 WEEKS
     Route: 048
     Dates: start: 20221104
  2. RITUXIMAB [Suspect]
     Active Substance: RITUXIMAB
     Indication: Chronic lymphocytic leukaemia
     Dosage: 650 MG, QD (HANLIKANG) (IV GTT)
     Route: 041
     Dates: start: 20221104, end: 20221104
  3. RITUXIMAB [Suspect]
     Active Substance: RITUXIMAB
     Dosage: 900 MG, 1 DOSE 4 WEEKS (HANLIKANG) (IV GTT)
     Route: 041
     Dates: start: 20221202
  4. Compound paracetamol and amantadine hydrochloride [Concomitant]
     Indication: COVID-19
     Dosage: 1 DOSAGE FORM, QD
     Route: 048
     Dates: start: 20221227, end: 20221227

REACTIONS (1)
  - Otitis media [Not Recovered/Not Resolved]

NARRATIVE: CASE EVENT DATE: 20230109
